FAERS Safety Report 23185412 (Version 2)
Quarter: 2024Q4

REPORT INFORMATION
  Report Type: Spontaneous
  Country: TR (occurrence: TR)
  Receive Date: 20231115
  Receipt Date: 20241224
  Transmission Date: 20250114
  Serious: Yes (Death, Life-Threatening, Hospitalization, Other)
  Sender: JUBILANT
  Company Number: None

PATIENT
  Age: 17 Year
  Sex: Female

DRUGS (5)
  1. RISPERIDONE [Suspect]
     Active Substance: RISPERIDONE
     Indication: Suicide attempt
     Dosage: 5 DOSAGE FORM, 5 TABLETS
     Route: 065
  2. METFORMIN [Suspect]
     Active Substance: METFORMIN HYDROCHLORIDE
     Indication: Suicide attempt
     Dosage: 40 DOSAGE FORM, 40 TABLETS
     Route: 048
  3. SERTRALINE [Suspect]
     Active Substance: SERTRALINE HYDROCHLORIDE
     Indication: Suicide attempt
     Dosage: 10 DOSAGE FORM, 10 TABLETS
     Route: 065
  4. FLUOXETINE [Suspect]
     Active Substance: FLUOXETINE HYDROCHLORIDE
     Indication: Suicide attempt
     Dosage: 8 DOSAGE FORM, 8 TABLETS
     Route: 065
  5. FLUVOXAMINE [Suspect]
     Active Substance: FLUVOXAMINE
     Indication: Suicide attempt
     Dosage: 10 DOSAGE FORM, 10 TABLETS
     Route: 065

REACTIONS (5)
  - Brugada syndrome [Recovered/Resolved]
  - Lactic acidosis [Fatal]
  - Metabolic acidosis [Fatal]
  - Overdose [Recovered/Resolved]
  - Unmasking of previously unidentified disease [Recovered/Resolved]
